FAERS Safety Report 13736787 (Version 3)
Quarter: 2017Q3

REPORT INFORMATION
  Report Type: Spontaneous
  Country: US (occurrence: US)
  Receive Date: 20170710
  Receipt Date: 20170914
  Transmission Date: 20171127
  Serious: No
  Sender: FDA-Public Use
  Company Number: US-BAYER-2017-131304

PATIENT
  Age: 2 Year
  Sex: Female

DRUGS (2)
  1. MIRALAX [Suspect]
     Active Substance: POLYETHYLENE GLYCOL 3350
     Indication: CONSTIPATION
     Dosage: 1/2 CAPFUL DAILY. 1/4 CAPFUL DAILY. 1/4 CAPFUL EVERY OTHER DAY. 1/4 CAPFUL 1-2X/WEEK.
     Dates: start: 201208, end: 201608
  2. MIRALAX [Suspect]
     Active Substance: POLYETHYLENE GLYCOL 3350
     Indication: CONSTIPATION

REACTIONS (10)
  - Restlessness [Recovered/Resolved]
  - Dysphagia [Recovered/Resolved]
  - Off label use [Recovered/Resolved]
  - Paranoia [Recovered/Resolved]
  - Personality disorder [Recovered/Resolved]
  - Drug administered to patient of inappropriate age [Recovered/Resolved]
  - Abnormal behaviour [Recovered/Resolved]
  - Anxiety [Recovered/Resolved]
  - Anger [Recovered/Resolved]
  - Incorrect drug administration duration [Recovered/Resolved]

NARRATIVE: CASE EVENT DATE: 201208
